FAERS Safety Report 19394082 (Version 3)
Quarter: 2021Q3

REPORT INFORMATION
  Report Type: Spontaneous
  Country: FR (occurrence: FR)
  Receive Date: 20210609
  Receipt Date: 20210909
  Transmission Date: 20211014
  Serious: Yes (Hospitalization, Other)
  Sender: FDA-Public Use
  Company Number: FR-ALNYLAM PHARMACEUTICALS, INC.-ALN-2021-001351

PATIENT

DRUGS (9)
  1. OXLUMO [Suspect]
     Active Substance: LUMASIRAN
     Dosage: 3 MILLIGRAM/KILOGRAM
     Route: 058
     Dates: start: 20201207, end: 20201207
  2. OXLUMO [Suspect]
     Active Substance: LUMASIRAN
     Dosage: 3 MILLIGRAM/KILOGRAM
     Route: 058
     Dates: start: 20210107, end: 20210107
  3. B6 [Concomitant]
     Active Substance: PYRIDOXINE HYDROCHLORIDE
     Indication: PRIMARY HYPEROXALURIA
     Route: 065
  4. OXLUMO [Suspect]
     Active Substance: LUMASIRAN
     Indication: PRIMARY HYPEROXALURIA
     Dosage: 3 MILLIGRAM/KILOGRAM
     Route: 058
     Dates: start: 20210319
  5. TACROLIMUS. [Concomitant]
     Active Substance: TACROLIMUS
     Indication: RENAL TRANSPLANT
     Route: 065
  6. CITRATE [Concomitant]
     Active Substance: CITRIC ACID MONOHYDRATE
     Indication: PRIMARY HYPEROXALURIA
     Route: 065
  7. STIRIPENTOL [Concomitant]
     Active Substance: STIRIPENTOL
     Indication: PRIMARY HYPEROXALURIA
     Dosage: UNK
     Route: 065
     Dates: start: 2020
  8. HYDROCHLOROTHIAZIDE. [Concomitant]
     Active Substance: HYDROCHLOROTHIAZIDE
     Indication: PRIMARY HYPEROXALURIA
     Route: 065
  9. OXLUMO [Suspect]
     Active Substance: LUMASIRAN
     Dosage: 3 MILLIGRAM/KILOGRAM
     Route: 058
     Dates: start: 20210208, end: 20210208

REACTIONS (2)
  - Urine oxalate increased [Recovering/Resolving]
  - Renal failure [Unknown]
